FAERS Safety Report 9703034 (Version 2)
Quarter: 2015Q3

REPORT INFORMATION
  Report Type: Report from Study
  Country: US (occurrence: US)
  Receive Date: 20131122
  Receipt Date: 20150929
  Transmission Date: 20151125
  Serious: Yes (Other)
  Sender: FDA-Public Use
  Company Number: US-ROCHE-1307523

PATIENT
  Sex: Female

DRUGS (7)
  1. ALBUTEROL. [Concomitant]
     Active Substance: ALBUTEROL
     Dosage: 1-2 PUFFS EVERY 4-6 HOURS, AS NEEDED
     Route: 048
  2. DILTIAZEM [Concomitant]
     Active Substance: DILTIAZEM
     Indication: SINUS TACHYCARDIA
  3. CLARINEX-D [Concomitant]
     Active Substance: DESLORATADINE\PSEUDOEPHEDRINE SULFATE
     Indication: RHINITIS ALLERGIC
  4. PREDNISONE. [Concomitant]
     Active Substance: PREDNISONE
     Route: 065
  5. OMEPRAZOLE. [Concomitant]
     Active Substance: OMEPRAZOLE
     Indication: GASTROOESOPHAGEAL REFLUX DISEASE
     Route: 048
  6. XOLAIR [Suspect]
     Active Substance: OMALIZUMAB
     Indication: ASTHMA
     Dosage: STARTED 2-3 YRS AGO
     Route: 058
  7. DULERA [Concomitant]
     Active Substance: FORMOTEROL FUMARATE DIHYDRATE\MOMETASONE FUROATE
     Dosage: 200/5 MCG
     Route: 048

REACTIONS (12)
  - Obesity [Unknown]
  - Anaphylactic reaction [Unknown]
  - Iron deficiency anaemia [Unknown]
  - Asthma [Unknown]
  - Conjunctivitis [Unknown]
  - Eczema [Unknown]
  - Sinus tachycardia [Unknown]
  - Gastrooesophageal reflux disease [Unknown]
  - Dermatitis atopic [Unknown]
  - Seasonal allergy [Unknown]
  - Rhinitis perennial [Unknown]
  - Erythema nodosum [Unknown]
